FAERS Safety Report 4782859-1 (Version None)
Quarter: 2005Q3

REPORT INFORMATION
  Report Type: 
  Country: None (occurrence: None)
  Receive Date: 20050914
  Receipt Date: 20050606
  Transmission Date: 20060218
  Serious: Yes (Hospitalization)
  Sender: FDA-Public Use
  Company Number: 163-20785-05060088

PATIENT
  Age: 68 Year
  Sex: Male
  Weight: 100.6985 kg

DRUGS (13)
  1. THALOMID [Suspect]
     Indication: ACUTE MYELOID LEUKAEMIA
     Dosage: SEE IMAGE
     Route: 048
     Dates: start: 20050509, end: 20050516
  2. THALOMID [Suspect]
     Indication: MYELODYSPLASTIC SYNDROME
     Dosage: SEE IMAGE
     Route: 048
     Dates: start: 20050509, end: 20050516
  3. THALOMID [Suspect]
     Indication: ACUTE MYELOID LEUKAEMIA
     Dosage: SEE IMAGE
     Route: 048
     Dates: start: 20050517
  4. THALOMID [Suspect]
     Indication: MYELODYSPLASTIC SYNDROME
     Dosage: SEE IMAGE
     Route: 048
     Dates: start: 20050517
  5. VIDAZA [Suspect]
     Indication: ACUTE MYELOID LEUKAEMIA
     Dosage: 165 MG
     Dates: start: 20050509, end: 20050513
  6. VIDAZA [Suspect]
     Indication: MYELODYSPLASTIC SYNDROME
     Dosage: 165 MG
     Dates: start: 20050509, end: 20050513
  7. BETAPACE [Concomitant]
  8. IMDUR [Concomitant]
  9. LIPITOR [Concomitant]
  10. PRINIVIL [Concomitant]
  11. ALLOPURINOL [Concomitant]
  12. GLUCOPHAGE [Concomitant]
  13. PROTONIX [Concomitant]

REACTIONS (1)
  - ATRIAL FIBRILLATION [None]
